FAERS Safety Report 13461716 (Version 1)
Quarter: 2017Q2

REPORT INFORMATION
  Report Type: Spontaneous
  Country: DE (occurrence: DE)
  Receive Date: 20170420
  Receipt Date: 20170420
  Transmission Date: 20170830
  Serious: Yes (Hospitalization, Other)
  Sender: FDA-Public Use
  Company Number: DE-BAXTER-2017BAX013452

PATIENT
  Age: 78 Year
  Sex: Female
  Weight: 81.5 kg

DRUGS (21)
  1. PHYSIONEAL 40 GLUCOSE 2,27 % W/V 22,7 MG/ML PERITONEALDIALYSELOSUNG [Suspect]
     Active Substance: CALCIUM CHLORIDE\DEXTROSE\MAGNESIUM CHLORIDE\SODIUM CHLORIDE SOLUTION
     Indication: PERITONEAL DIALYSIS
     Route: 033
  2. EXTRANEAL [Suspect]
     Active Substance: CALCIUM CHLORIDE\ICODEXTRIN\MAGNESIUM CHLORIDE\SODIUM CHLORIDE\SODIUM LACTATE
     Indication: PERITONEAL DIALYSIS
     Route: 033
  3. SIMVABETA [Concomitant]
     Active Substance: SIMVASTATIN
     Indication: DRUG THERAPY
     Dosage: ONE EVENING
     Route: 065
  4. AMLODIPINE [Concomitant]
     Active Substance: AMLODIPINE BESYLATE
     Indication: BLOOD PRESSURE ABNORMAL
     Dosage: 2 MORNING, 1 EVENING
     Route: 065
  5. ALFACALCIDOL [Concomitant]
     Active Substance: ALFACALCIDOL
     Indication: VITAMIN SUPPLEMENTATION
     Route: 065
  6. EUTHYROX [Concomitant]
     Active Substance: LEVOTHYROXINE SODIUM
     Indication: PRODUCT USED FOR UNKNOWN INDICATION
     Route: 065
  7. BRIMICA GENUAIR [Concomitant]
     Active Substance: ACLIDINIUM BROMIDE\FORMOTEROL FUMARATE
     Indication: ASTHMA
     Route: 065
  8. MESALAZIN [Concomitant]
     Active Substance: MESALAMINE
     Indication: DRUG THERAPY
     Route: 065
  9. ASS HEXAL [Concomitant]
     Indication: ANTICOAGULANT THERAPY
     Route: 065
  10. PHYSIONEAL 40 GLUCOSE 1,36 % W/V 13,6 MG/ML PERITONEALDIALYSELOSUNG [Suspect]
     Active Substance: CALCIUM CHLORIDE\MAGNESIUM CHLORIDE\SODIUM CHLORIDE\SODIUM LACTATE
     Indication: PERITONEAL DIALYSIS
     Route: 033
  11. METOPROLOL-CT [Concomitant]
     Indication: BLOOD PRESSURE ABNORMAL
     Route: 065
  12. TORASEMID [Concomitant]
     Active Substance: TORSEMIDE
     Indication: DIURETIC THERAPY
     Route: 065
  13. PANTOPRAZOL [Concomitant]
     Active Substance: PANTOPRAZOLE SODIUM
     Indication: PROPHYLAXIS
     Route: 065
  14. CALCIUMACETAT NEFRO [Concomitant]
     Indication: BLOOD PHOSPHORUS
     Dosage: 1 AFTERNOON, 1 EVENING WITH MEALS
     Route: 065
  15. ALDACTONE [Concomitant]
     Active Substance: SPIRONOLACTONE
     Indication: DIURETIC THERAPY
     Route: 065
  16. CANDESARTAN PUREN [Concomitant]
     Indication: BLOOD PRESSURE ABNORMAL
     Route: 065
  17. XIPAMID [Concomitant]
     Active Substance: XIPAMIDE
     Indication: DIURETIC THERAPY
     Route: 065
  18. ARANESP FS [Concomitant]
     Indication: DRUG THERAPY
     Route: 065
  19. REKAWAN RETARD [Concomitant]
     Indication: BLOOD POTASSIUM
     Route: 065
  20. SYMBICORT [Concomitant]
     Active Substance: BUDESONIDE\FORMOTEROL FUMARATE DIHYDRATE
     Indication: DRUG THERAPY
     Dosage: 2 MORNING, 2 EVENING
     Route: 065
  21. DEKRISTOL [Concomitant]
     Active Substance: CHOLECALCIFEROL
     Indication: DRUG THERAPY
     Route: 065

REACTIONS (2)
  - Staphylococcal bacteraemia [Recovering/Resolving]
  - Peritonitis [Recovering/Resolving]

NARRATIVE: CASE EVENT DATE: 2017
